FAERS Safety Report 10732662 (Version 3)
Quarter: 2024Q3

REPORT INFORMATION
  Report Type: Spontaneous
  Country: GB (occurrence: GB)
  Receive Date: 20150123
  Receipt Date: 20240729
  Transmission Date: 20241016
  Serious: Yes (Hospitalization)
  Sender: MERCK
  Company Number: None

PATIENT
  Age: 16 Year
  Sex: Female
  Weight: 40 kg

DRUGS (22)
  1. APREPITANT [Interacting]
     Active Substance: APREPITANT
     Indication: Nausea
     Dosage: 80 MG, BID
     Route: 048
     Dates: start: 20141125, end: 20141209
  2. APREPITANT [Interacting]
     Active Substance: APREPITANT
     Dosage: 125 MG, BID
     Route: 048
     Dates: start: 20141209, end: 20141231
  3. CLARITHROMYCIN [Interacting]
     Active Substance: CLARITHROMYCIN
     Indication: Cystic fibrosis
     Dosage: 250 MG, BID
     Route: 048
     Dates: start: 20141204, end: 20141231
  4. AMITRIPTYLINE HYDROCHLORIDE [Concomitant]
     Active Substance: AMITRIPTYLINE HYDROCHLORIDE
     Dosage: 40 MG, QD
     Route: 048
  5. CHOLECALCIFEROL [Concomitant]
     Active Substance: CHOLECALCIFEROL
     Dosage: 800 IU, QD
     Route: 048
  6. CYCLIZINE [Concomitant]
     Active Substance: CYCLIZINE
     Dosage: 50 MG, TID
     Route: 048
  7. CYCLIZINE [Concomitant]
     Active Substance: CYCLIZINE
     Dosage: 50 MG, TID
     Route: 042
  8. DORNASE ALFA [Concomitant]
     Active Substance: DORNASE ALFA
     Dosage: 2.5 MG, BID
  9. FOLIC ACID\IRON\MINERALS\VITAMINS [Concomitant]
     Active Substance: FOLIC ACID\IRON\MINERALS\VITAMINS
  10. SODIUM CHLORIDE [Concomitant]
     Active Substance: SODIUM CHLORIDE
     Dosage: 8 ML, TID
  11. ITRACONAZOLE [Concomitant]
     Active Substance: ITRACONAZOLE
     Dosage: 400 MG, BID
     Route: 048
  12. LOPERAMIDE HYDROCHLORIDE [Concomitant]
     Active Substance: LOPERAMIDE HYDROCHLORIDE
     Dosage: 2 MG, BID
     Route: 048
  13. MESALAMINE [Concomitant]
     Active Substance: MESALAMINE
     Dosage: 500 MG, QD
     Route: 054
  14. OMEPRAZOLE [Concomitant]
     Active Substance: OMEPRAZOLE
     Dosage: 10 MG, QD
     Route: 048
  15. RANITIDINE [Concomitant]
     Active Substance: RANITIDINE
     Dosage: 140 MG, BID
     Route: 048
  16. SALBUTAMOL SANDOZ [SALBUTAMOL] [Concomitant]
     Dosage: 5 MG, PRN
  17. SELENIUM [Concomitant]
     Active Substance: SELENIUM
     Dosage: 100 MICROGRAM, QD
     Route: 048
  18. SODIUM CHLORIDE [Concomitant]
     Active Substance: SODIUM CHLORIDE
     Dosage: 17 MILLIMOLE, QD
     Route: 048
  19. TERBINAFINE [Concomitant]
     Active Substance: TERBINAFINE
     Dosage: 250 MG, QD
     Route: 048
  20. RETINOL [Concomitant]
     Active Substance: RETINOL
     Dosage: 10000 IU, QD
     Route: 048
  21. VITAMIN B COMPLEX [Concomitant]
     Active Substance: CYANOCOBALAMIN\DEXPANTHENOL\NIACINAMIDE\PYRIDOXINE HYDROCHLORIDE\RIBOFLAVIN 5^-PHOSPHATE SODIUM\THIA
     Dosage: 2 DF, TID
     Route: 048
  22. VITAMIN K [Concomitant]
     Active Substance: PHYTONADIONE
     Dosage: 10 MG, QD
     Route: 048

REACTIONS (3)
  - Drug interaction [Unknown]
  - Tachycardia [Recovered/Resolved]
  - Off label use [Unknown]

NARRATIVE: CASE EVENT DATE: 20141125
